FAERS Safety Report 12915236 (Version 1)
Quarter: 2016Q4

REPORT INFORMATION
  Report Type: Spontaneous
  Country: US (occurrence: US)
  Receive Date: 20161106
  Receipt Date: 20161106
  Transmission Date: 20170207
  Serious: No
  Sender: FDA-Public Use
  Company Number: US-RELYPSA-RLY2016002626

PATIENT
  Age: 70 Year
  Sex: Female

DRUGS (1)
  1. VELTASSA [Suspect]
     Active Substance: PATIROMER
     Indication: BLOOD POTASSIUM INCREASED
     Dosage: 8.4 G, QD
     Route: 048
     Dates: start: 201609

REACTIONS (4)
  - Headache [Not Recovered/Not Resolved]
  - Therapeutic response unexpected [Unknown]
  - Nausea [Recovered/Resolved]
  - Vomiting [Recovered/Resolved]

NARRATIVE: CASE EVENT DATE: 201609
